FAERS Safety Report 9842372 (Version 1)
Quarter: 2014Q1

REPORT INFORMATION
  Report Type: Spontaneous
  Country: US (occurrence: US)
  Receive Date: 20140124
  Receipt Date: 20140124
  Transmission Date: 20141002
  Serious: No
  Sender: FDA-Public Use
  Company Number: US-GILEAD-2011-0036415

PATIENT
  Sex: Male

DRUGS (3)
  1. RANEXA [Suspect]
     Indication: ANGINA PECTORIS
     Route: 048
  2. RANEXA [Suspect]
     Route: 048
  3. LIPITOR [Concomitant]

REACTIONS (2)
  - Chest discomfort [Unknown]
  - Constipation [Recovering/Resolving]
